FAERS Safety Report 19219574 (Version 1)
Quarter: 2021Q2

REPORT INFORMATION
  Report Type: Spontaneous
  Country: US (occurrence: US)
  Receive Date: 20210506
  Receipt Date: 20210506
  Transmission Date: 20210717
  Serious: No
  Sender: FDA-Public Use
  Company Number: US-ROCHE-2655930

PATIENT
  Age: 80 Year
  Sex: Female
  Weight: 65.9 kg

DRUGS (2)
  1. ESBRIET [Suspect]
     Active Substance: PIRFENIDONE
     Indication: IDIOPATHIC PULMONARY FIBROSIS
     Dosage: TAKEN 3 TIMES A DAY ;ONGOING: NO
     Route: 048
     Dates: start: 201502, end: 201907
  2. ESBRIET [Suspect]
     Active Substance: PIRFENIDONE
     Dosage: TWO 267 MG CAPSULES TAKEN 3 TIMES A DAY ;ONGOING: NO
     Route: 048
     Dates: start: 201907, end: 20200620

REACTIONS (3)
  - Nausea [Not Recovered/Not Resolved]
  - Vomiting [Not Recovered/Not Resolved]
  - Sunburn [Unknown]

NARRATIVE: CASE EVENT DATE: 20190701
